FAERS Safety Report 21529717 (Version 2)
Quarter: 2023Q1

REPORT INFORMATION
  Report Type: Report from Study
  Country: US (occurrence: US)
  Receive Date: 20221031
  Receipt Date: 20230131
  Transmission Date: 20230418
  Serious: No
  Sender: FDA-Public Use
  Company Number: US-ABBVIE-22K-163-4425768-00

PATIENT
  Age: 54 Year
  Sex: Female

DRUGS (3)
  1. RINVOQ [Suspect]
     Active Substance: UPADACITINIB
     Indication: Rheumatoid arthritis
     Route: 048
     Dates: start: 202108
  2. RINVOQ [Suspect]
     Active Substance: UPADACITINIB
     Indication: Rheumatoid arthritis
     Route: 048
  3. RINVOQ [Suspect]
     Active Substance: UPADACITINIB
     Indication: Rheumatoid arthritis
     Dosage: 08/2021 FIRST ADMIN DATE

REACTIONS (19)
  - Joint swelling [Unknown]
  - Musculoskeletal stiffness [Unknown]
  - Depression [Unknown]
  - Peripheral swelling [Not Recovered/Not Resolved]
  - Asthma [Not Recovered/Not Resolved]
  - COVID-19 [Recovered/Resolved]
  - Tooth infection [Unknown]
  - Fatigue [Unknown]
  - Arthralgia [Unknown]
  - Anxiety [Unknown]
  - Back pain [Unknown]
  - Malaise [Unknown]
  - Fatigue [Unknown]
  - Blood cholesterol increased [Unknown]
  - General physical health deterioration [Unknown]
  - Pain [Unknown]
  - Peripheral swelling [Unknown]
  - Nasal congestion [Unknown]
  - Hypertension [Unknown]

NARRATIVE: CASE EVENT DATE: 20220601
